FAERS Safety Report 4996468-2 (Version None)
Quarter: 2006Q2

REPORT INFORMATION
  Report Type: 
  Country: None (occurrence: None)
  Receive Date: 20060505
  Receipt Date: 20060501
  Transmission Date: 20061013
  Serious: Yes (Hospitalization)
  Sender: FDA-Public Use
  Company Number: NLWYE477316MAR06

PATIENT
  Age: 60 Year
  Sex: Male

DRUGS (2)
  1. EFFEXOR XR [Suspect]
     Indication: DEPRESSION
     Dosage: 225 MG 1X PER 1 DAY ORAL
     Route: 048
     Dates: start: 20000101
  2. LITHIUM CARBONATE [Suspect]
     Dosage: 400 MG 3X PER 1 DAY

REACTIONS (2)
  - APHASIA [None]
  - CEREBELLAR SYNDROME [None]
